FAERS Safety Report 9822303 (Version 1)
Quarter: 2014Q1

REPORT INFORMATION
  Report Type: Spontaneous
  Country: FR (occurrence: None)
  Receive Date: 20140115
  Receipt Date: 20140115
  Transmission Date: 20141002
  Serious: Yes (Hospitalization)
  Sender: FDA-Public Use
  Company Number: FK201400081

PATIENT
  Age: 62 Year
  Sex: Female

DRUGS (2)
  1. PACLITAXEL [Suspect]
     Indication: METASTATIC BRONCHIAL CARCINOMA
     Dosage: 175 MG/M2 1 CYCLE, INTRAVENOUS (NOT OTHERWISE SPECIFIED)
     Route: 042
     Dates: start: 20131121, end: 20131211
  2. CARBOPLATIN (CARBOPLATIN) [Concomitant]

REACTIONS (2)
  - Bronchospasm [None]
  - Hypersensitivity [None]
